FAERS Safety Report 13227930 (Version 1)
Quarter: 2017Q1

REPORT INFORMATION
  Report Type: Report from Study
  Country: None (occurrence: US)
  Receive Date: 20170213
  Receipt Date: 20170213
  Transmission Date: 20170428
  Serious: Yes (Other)
  Sender: FDA-Public Use
  Company Number: US-ABBVIE-17P-163-1870003-00

PATIENT
  Age: 71 Year
  Sex: Male

DRUGS (1)
  1. CREON [Suspect]
     Active Substance: PANCRELIPASE AMYLASE\PANCRELIPASE LIPASE\PANCRELIPASE PROTEASE
     Indication: PRODUCT USED FOR UNKNOWN INDICATION
     Dosage: 2-3 WITH MEALS 1 WITH SNACKS
     Route: 065

REACTIONS (3)
  - Pancreatic carcinoma recurrent [Unknown]
  - Pancreatic carcinoma metastatic [Unknown]
  - Pancreatic carcinoma [Unknown]

NARRATIVE: CASE EVENT DATE: 201406
